FAERS Safety Report 22635668 (Version 1)
Quarter: 2023Q2

REPORT INFORMATION
  Report Type: Spontaneous
  Country: US (occurrence: None)
  Receive Date: 20230620
  Receipt Date: 20230620
  Transmission Date: 20230721
  Serious: No
  Sender: FDA-Public Use
  Company Number: None

PATIENT
  Age: 61 Year
  Sex: Female
  Weight: 63.5 kg

DRUGS (3)
  1. OTEZLA [Suspect]
     Active Substance: APREMILAST
     Indication: Rheumatoid arthritis
     Dosage: FREQUENCY : TWICE A DAY;?
     Route: 048
     Dates: start: 202212
  2. OTEZLA [Suspect]
     Active Substance: APREMILAST
     Indication: Sacroiliitis
  3. OTEZLA [Suspect]
     Active Substance: APREMILAST
     Indication: Crohn^s disease

REACTIONS (1)
  - Gastric operation [None]
